FAERS Safety Report 10195765 (Version 2)
Quarter: 2014Q2

REPORT INFORMATION
  Report Type: Report from Study
  Country: VE (occurrence: VE)
  Receive Date: 20140527
  Receipt Date: 20140626
  Transmission Date: 20141212
  Serious: Yes (Other)
  Sender: FDA-Public Use
  Company Number: VE-ROCHE-1408328

PATIENT
  Age: 32 Year
  Sex: Female

DRUGS (4)
  1. XOLAIR [Suspect]
     Indication: ASTHMA
     Route: 058
     Dates: start: 20140317, end: 20140317
  2. XOLAIR [Interacting]
     Indication: ASTHMA
  3. EUTHYROX [Interacting]
     Indication: HYPERTHYROIDISM
     Route: 065
  4. TAPAZOL [Concomitant]
     Indication: HYPERTHYROIDISM
     Route: 048

REACTIONS (11)
  - Dyspnoea [Recovered/Resolved]
  - Hypotension [Recovered/Resolved]
  - Drug interaction [Unknown]
  - Chest discomfort [Recovered/Resolved]
  - Vomiting [Recovered/Resolved]
  - Asthenia [Recovered/Resolved]
  - Gait disturbance [Recovered/Resolved]
  - Pyrexia [Recovered/Resolved]
  - Somnolence [Recovered/Resolved]
  - Injection site swelling [Recovered/Resolved]
  - Fatigue [Recovered/Resolved]
